FAERS Safety Report 7932972-2 (Version None)
Quarter: 2011Q4

REPORT INFORMATION
  Report Type: 
  Country: None (occurrence: None)
  Receive Date: 20111122
  Receipt Date: 20111108
  Transmission Date: 20120403
  Serious: Yes (Disabling, Other)
  Sender: FDA-Public Use
  Company Number: PHHY2011NL91437

PATIENT
  Sex: Male
  Weight: 112 kg

DRUGS (6)
  1. DIOVAN HCT [Concomitant]
     Indication: HYPERTENSION
     Route: 048
     Dates: start: 20100308, end: 20100904
  2. DIURETICS [Concomitant]
  3. CARBOPLATIN [Concomitant]
  4. DIOVAN [Concomitant]
     Dosage: 80 MG
  5. ALISKIREN [Suspect]
  6. ANGIOTENSIN II ANTAGONISTS [Concomitant]

REACTIONS (6)
  - BLOOD PRESSURE INCREASED [None]
  - SQUAMOUS CELL CARCINOMA [None]
  - MOUTH ULCERATION [None]
  - TONGUE NEOPLASM MALIGNANT STAGE UNSPECIFIED [None]
  - LIP AND/OR ORAL CAVITY CANCER [None]
  - LOCAL SWELLING [None]
